FAERS Safety Report 15239444 (Version 1)
Quarter: 2018Q3

REPORT INFORMATION
  Report Type: Spontaneous
  Country: JP (occurrence: JP)
  Receive Date: 20180803
  Receipt Date: 20180803
  Transmission Date: 20181010
  Serious: Yes (Death)
  Sender: FDA-Public Use
  Company Number: JP-NOVAST LABORATORIES, LTD-JP-2018NOV000281

PATIENT
  Sex: Female
  Weight: 67 kg

DRUGS (2)
  1. QUETIAPINE FUMARATE. [Suspect]
     Active Substance: QUETIAPINE FUMARATE
     Indication: AFFECTIVE DISORDER
     Dosage: UNK
     Route: 048
  2. FLUNITRAZEPAM [Suspect]
     Active Substance: FLUNITRAZEPAM
     Indication: AFFECTIVE DISORDER
     Dosage: UNK
     Route: 048

REACTIONS (3)
  - Loss of consciousness [Fatal]
  - Intentional overdose [Fatal]
  - Hypothermia [Fatal]
